FAERS Safety Report 5571418-9 (Version None)
Quarter: 2007Q4

REPORT INFORMATION
  Report Type: 
  Country: None (occurrence: None)
  Receive Date: 20071221
  Receipt Date: 20071030
  Transmission Date: 20080405
  Serious: No
  Sender: FDA-Public Use
  Company Number: A0690537A

PATIENT
  Age: 49 Year
  Sex: Female

DRUGS (3)
  1. FLONASE [Suspect]
     Indication: DRUG USE FOR UNKNOWN INDICATION
     Dosage: 50MG AS REQUIRED
     Route: 045
     Dates: start: 20020401, end: 20020101
  2. PROZAC [Concomitant]
  3. SYNTHROID [Concomitant]

REACTIONS (4)
  - EPISTAXIS [None]
  - MASS [None]
  - NASAL SEPTUM DISORDER [None]
  - SCAB [None]
